FAERS Safety Report 6087234-8 (Version None)
Quarter: 2009Q1

REPORT INFORMATION
  Report Type: 
  Country: None (occurrence: None)
  Receive Date: 20090219
  Receipt Date: 20081208
  Transmission Date: 20090719
  Serious: No
  Sender: FDA-Public Use
  Company Number: WAES 0812USA02030

PATIENT
  Age: 55 Year
  Sex: Male

DRUGS (4)
  1. ISENTRESS [Suspect]
     Indication: HIV INFECTION
     Dosage: 400 MG/BID/PO
     Route: 048
     Dates: start: 20070601
  2. NORVIR [Concomitant]
  3. PREZISTA [Concomitant]
  4. TRUVADA [Concomitant]

REACTIONS (1)
  - MYOPATHY [None]
